APPROVED DRUG PRODUCT: LIDOCAINE HYDROCHLORIDE IN PLASTIC CONTAINER
Active Ingredient: LIDOCAINE HYDROCHLORIDE
Strength: 2%
Dosage Form/Route: INJECTABLE;INJECTION
Application: A088327 | Product #001 | TE Code: AP
Applicant: HOSPIRA INC
Approved: Jul 31, 1984 | RLD: No | RS: No | Type: RX